FAERS Safety Report 17431692 (Version 1)
Quarter: 2020Q1

REPORT INFORMATION
  Report Type: Report from Study
  Country: FR (occurrence: FR)
  Receive Date: 20200218
  Receipt Date: 20200218
  Transmission Date: 20200409
  Serious: Yes (Hospitalization, Other)
  Sender: FDA-Public Use
  Company Number: FR-MYLANLABS-2020M1017747

PATIENT
  Sex: Female
  Weight: 52 kg

DRUGS (9)
  1. CISPLATIN. [Suspect]
     Active Substance: CISPLATIN
     Indication: PRODUCT USED FOR UNKNOWN INDICATION
     Dosage: 127 MILLIGRAM
     Dates: start: 20190603, end: 20190603
  2. EMEND [Concomitant]
     Active Substance: APREPITANT
     Dosage: UNK, QWK
     Dates: start: 20190603
  3. SODIUM [Concomitant]
     Active Substance: SODIUM
     Dosage: 2050 MILLILITER
     Route: 042
     Dates: start: 20190603
  4. EMEND [Concomitant]
     Active Substance: APREPITANT
     Dosage: 80 MILLIGRAM
     Route: 048
     Dates: start: 20190603
  5. ONDANSETRON [Concomitant]
     Active Substance: ONDANSETRON
     Dosage: 8 MILLIGRAM
     Route: 042
     Dates: start: 20190603
  6. ZARZIO [Concomitant]
     Active Substance: FILGRASTIM
     Dosage: 3 OTHER
     Route: 042
     Dates: start: 20190806, end: 20190806
  7. MANNITOL. [Concomitant]
     Active Substance: MANNITOL
     Dosage: 500 MILLILITER, QWK
     Route: 042
     Dates: start: 20190603
  8. ETOPOSIDE. [Suspect]
     Active Substance: ETOPOSIDE
     Indication: PRODUCT USED FOR UNKNOWN INDICATION
     Dosage: 168 MILLIGRAM
     Route: 065
     Dates: start: 20190603, end: 20190603
  9. METHYLPREDNISOLONE. [Concomitant]
     Active Substance: METHYLPREDNISOLONE
     Dosage: 60 MILLIGRAM
     Route: 042
     Dates: start: 20190603

REACTIONS (4)
  - Meningitis [Unknown]
  - Neutropenia [Unknown]
  - Pain in extremity [Unknown]
  - Malignant neoplasm progression [Unknown]
